FAERS Safety Report 13737309 (Version 2)
Quarter: 2017Q3

REPORT INFORMATION
  Report Type: Spontaneous
  Country: US (occurrence: US)
  Receive Date: 20170710
  Receipt Date: 20170726
  Transmission Date: 20171127
  Serious: Yes (Hospitalization)
  Sender: FDA-Public Use
  Company Number: US-NOVOPROD-552399

PATIENT
  Age: 61 Year
  Sex: Male
  Weight: 235 kg

DRUGS (2)
  1. NOVOLOG [Suspect]
     Active Substance: INSULIN ASPART
     Indication: TYPE 2 DIABETES MELLITUS
     Dosage: 38 U, TID (BEFORE EACH MEAL)
     Route: 058
     Dates: start: 201103
  2. NOVOLOG [Suspect]
     Active Substance: INSULIN ASPART
     Dosage: 38 U, TID (BEFORE EACH MEAL)
     Route: 058

REACTIONS (2)
  - Staphylococcal infection [Not Recovered/Not Resolved]
  - Diabetic foot [Not Recovered/Not Resolved]

NARRATIVE: CASE EVENT DATE: 201612
